FAERS Safety Report 5273569-5 (Version None)
Quarter: 2007Q1

REPORT INFORMATION
  Report Type: 
  Country: None (occurrence: None)
  Receive Date: 20070321
  Receipt Date: 20070321
  Transmission Date: 20070707
  Serious: Yes (Other)
  Sender: FDA-Public Use
  Company Number: None

PATIENT
  Age: 74 Year
  Sex: Female
  Weight: 57.1532 kg

DRUGS (2)
  1. SIMVASTATIN [Suspect]
     Indication: BLOOD CHOLESTEROL INCREASED
     Dosage: 1 EVERYDAY PO
     Route: 048
  2. SIMVASTATIN [Suspect]
     Indication: CARDIAC DISORDER
     Dosage: 1 EVERYDAY PO
     Route: 048

REACTIONS (7)
  - ANOREXIA [None]
  - ASTHENIA [None]
  - CONTUSION [None]
  - DYSPHAGIA [None]
  - FATIGUE [None]
  - JOINT SWELLING [None]
  - MYALGIA [None]
